FAERS Safety Report 11474252 (Version 1)
Quarter: 2015Q3

REPORT INFORMATION
  Report Type: Spontaneous
  Country: JP (occurrence: JP)
  Receive Date: 20150908
  Receipt Date: 20150908
  Transmission Date: 20151125
  Serious: Yes (Other)
  Sender: FDA-Public Use
  Company Number: JP-BIOMARINAP-JP-2015-107323

PATIENT
  Age: 4 Year
  Sex: Male

DRUGS (3)
  1. POULTICE [Concomitant]
     Indication: PRODUCT USED FOR UNKNOWN INDICATION
     Dosage: UNK
     Dates: start: 201412, end: 201501
  2. POULTICE [Concomitant]
     Dosage: UNK
     Dates: start: 201502, end: 201503
  3. KUVAN [Suspect]
     Active Substance: SAPROPTERIN DIHYDROCHLORIDE
     Indication: PHENYLKETONURIA
     Dosage: UNK
     Route: 048
     Dates: start: 20140401

REACTIONS (4)
  - Urticaria [Unknown]
  - Asthma [Unknown]
  - Asthma [Unknown]
  - Pharyngitis [Unknown]

NARRATIVE: CASE EVENT DATE: 201412
